FAERS Safety Report 5758935-3 (Version None)
Quarter: 2008Q2

REPORT INFORMATION
  Report Type: 
  Country: None (occurrence: None)
  Receive Date: 20080602
  Receipt Date: 20080515
  Transmission Date: 20081010
  Serious: Yes (Hospitalization)
  Sender: FDA-Public Use
  Company Number: 8032889

PATIENT
  Sex: Male
  Weight: 26 kg

DRUGS (4)
  1. KEPPRA [Suspect]
     Dosage: 500 MG 2/D
  2. KEPPRA [Suspect]
     Dosage: 260 MG 2/D
  3. TOPIRAMATE [Concomitant]
  4. CARBAMAZEPINE [Concomitant]

REACTIONS (5)
  - GENERAL PHYSICAL HEALTH DETERIORATION [None]
  - STATUS EPILEPTICUS [None]
  - TREATMENT NONCOMPLIANCE [None]
  - VIRAL INFECTION [None]
  - VOMITING [None]
